FAERS Safety Report 6964096-5 (Version None)
Quarter: 2010Q3

REPORT INFORMATION
  Report Type: 
  Country: None (occurrence: None)
  Receive Date: 20100831
  Receipt Date: 20100825
  Transmission Date: 20110219
  Serious: Yes (Other)
  Sender: FDA-Public Use
  Company Number: 2010SP046004

PATIENT
  Age: 33 Year
  Sex: Female

DRUGS (5)
  1. ORGARAN [Suspect]
     Indication: PRODUCT USED FOR UNKNOWN INDICATION
     Dosage: IV
     Route: 042
  2. PREDONINE [Concomitant]
  3. BAFERIN (ASPIRIN) [Concomitant]
  4. HEPARIN SODIUM [Concomitant]
  5. CAPROCIN [Concomitant]

REACTIONS (4)
  - CONGENITAL UTERINE ANOMALY [None]
  - DRUG EXPOSURE DURING PREGNANCY [None]
  - INTRA-UTERINE DEATH [None]
  - SELF-MEDICATION [None]
